FAERS Safety Report 8032338-3 (Version None)
Quarter: 2011Q4

REPORT INFORMATION
  Report Type: 
  Country: None (occurrence: None)
  Receive Date: 20111201
  Receipt Date: 20110831
  Transmission Date: 20120403
  Serious: Yes (Hospitalization)
  Sender: FDA-Public Use
  Company Number: 20110831CINRY2261

PATIENT
  Age: 18 Year
  Sex: Female

DRUGS (2)
  1. CINRYZE [Suspect]
     Indication: PROPHYLAXIS
     Dosage: (1000 IU, EVERY 3 TO 4 DAYS), INTRAVENOUS
     Route: 042
  2. CINRYZE [Suspect]
     Indication: HEREDITARY ANGIOEDEMA
     Dosage: (1000 IU, EVERY 3 TO 4 DAYS), INTRAVENOUS
     Route: 042

REACTIONS (1)
  - HEREDITARY ANGIOEDEMA [None]
